FAERS Safety Report 14232247 (Version 1)
Quarter: 2017Q4

REPORT INFORMATION
  Report Type: Spontaneous
  Country: IE (occurrence: IE)
  Receive Date: 20171128
  Receipt Date: 20171128
  Transmission Date: 20180321
  Serious: Yes (Death, Other)
  Sender: FDA-Public Use
  Company Number: IE-SA-2017SA231344

PATIENT

DRUGS (1)
  1. MABCAMPATH [Suspect]
     Active Substance: ALEMTUZUMAB
     Indication: CHRONIC LYMPHOCYTIC LEUKAEMIA
     Route: 065

REACTIONS (3)
  - Cerebral haemorrhage [Fatal]
  - Haemorrhage [Unknown]
  - Thrombocytopenia [Unknown]
